FAERS Safety Report 7430224-0 (Version None)
Quarter: 2011Q2

REPORT INFORMATION
  Report Type: 
  Country: None (occurrence: None)
  Receive Date: 20110421
  Receipt Date: 20100714
  Transmission Date: 20111010
  Serious: Yes (Other)
  Sender: FDA-Public Use
  Company Number: US-ASTRAZENECA-2010SE20143

PATIENT
  Age: 84 Year
  Sex: Female
  Weight: 54.4 kg

DRUGS (3)
  1. METOPROLOL SUCCINATE [Suspect]
     Dosage: GENERIC FORM
     Route: 048
     Dates: start: 20100101
  2. ALTACE [Concomitant]
     Indication: HYPERTENSION
  3. METOPROLOL SUCCINATE [Suspect]
     Indication: HYPERTENSION
     Dosage: TOPROL XL 25MG DAILY
     Route: 048
     Dates: start: 20000101, end: 20100101

REACTIONS (1)
  - ALOPECIA [None]
